FAERS Safety Report 17287255 (Version 3)
Quarter: 2020Q1

REPORT INFORMATION
  Report Type: Spontaneous
  Country: US (occurrence: US)
  Receive Date: 20200120
  Receipt Date: 20200306
  Transmission Date: 20200409
  Serious: Yes (Hospitalization)
  Sender: FDA-Public Use
  Company Number: US-ROCHE-2517345

PATIENT
  Age: 77 Year
  Sex: Male
  Weight: 74.91 kg

DRUGS (6)
  1. FLOMAX [Concomitant]
     Active Substance: TAMSULOSIN HYDROCHLORIDE
     Indication: CATHETER PLACEMENT
     Dosage: STARTED PRIOR TO OCREVUS ;ONGOING:YES
     Route: 065
  2. METHENAMINE [Concomitant]
     Active Substance: METHENAMINE
     Dosage: METHENAMINE;ONGOING:YES
     Route: 065
  3. BACLOFEN. [Concomitant]
     Active Substance: BACLOFEN
     Dosage: STARTED PRIOR TO OCREVUS;ONGOING:YES
     Route: 065
  4. AMANTADINE. [Concomitant]
     Active Substance: AMANTADINE HYDROCHLORIDE
     Indication: ASTHENIA
     Dosage: STARTED PRIOR TO OCREVUS;ONGOING:YES
     Route: 065
  5. OCREVUS [Suspect]
     Active Substance: OCRELIZUMAB
     Indication: RELAPSING MULTIPLE SCLEROSIS
     Dosage: PREVIOUS DATE OF TREATMENT = 05/JUN/2019, 16/DEC/2017, 10/MAY/2018, 15/MAY/2018, 03/DEC/2018, 25/APR
     Route: 042
     Dates: start: 20171201
  6. OCREVUS [Suspect]
     Active Substance: OCRELIZUMAB
     Indication: PRIMARY PROGRESSIVE MULTIPLE SCLEROSIS

REACTIONS (2)
  - Pneumonia [Recovered/Resolved]
  - Dysstasia [Recovering/Resolving]

NARRATIVE: CASE EVENT DATE: 201911
